FAERS Safety Report 9170801 (Version 2)
Quarter: 2013Q2

REPORT INFORMATION
  Report Type: Spontaneous
  Country: US (occurrence: US)
  Receive Date: 20130319
  Receipt Date: 20130403
  Transmission Date: 20140414
  Serious: No
  Sender: FDA-Public Use
  Company Number: US-BAYER-2013-033697

PATIENT
  Age: 74 Year
  Sex: Female
  Weight: 72.56 kg

DRUGS (9)
  1. ALEVE CAPLET [Suspect]
     Indication: ARTHRITIS
     Dosage: 2 DF, QD
     Route: 048
     Dates: start: 201303
  2. IBUPROFEN [Concomitant]
  3. ASPIRIN [Concomitant]
  4. IMMODIUM [Concomitant]
  5. FIBERTABS [Concomitant]
  6. VITAMIN D [Concomitant]
  7. CALTRATE [CALCIUM,VITAMIN D NOS] [Concomitant]
  8. ANTIVERT [Concomitant]
  9. LEVOTHYROID [Concomitant]

REACTIONS (3)
  - Incorrect drug administration duration [None]
  - Drug ineffective [None]
  - Therapeutic response unexpected [None]
